FAERS Safety Report 4965502-8 (Version None)
Quarter: 2006Q1

REPORT INFORMATION
  Report Type: 
  Country: None (occurrence: None)
  Receive Date: 20060201
  Receipt Date: 20051207
  Transmission Date: 20060701
  Serious: No
  Sender: FDA-Public Use
  Company Number: 2005PV005550

PATIENT
  Age: 68 Year
  Sex: Male
  Weight: 108.8633 kg

DRUGS (12)
  1. BYETTA [Suspect]
     Indication: DIABETES MELLITUS NON-INSULIN-DEPENDENT
     Dosage: SEE IMAGE
     Route: 058
     Dates: start: 20051001, end: 20051101
  2. BYETTA [Suspect]
     Indication: DIABETES MELLITUS NON-INSULIN-DEPENDENT
     Dosage: SEE IMAGE
     Route: 058
     Dates: start: 20051124
  3. GLUCOPHAGE [Concomitant]
  4. STARLIX [Concomitant]
  5. PLAVIX [Concomitant]
  6. NORVASC [Concomitant]
  7. METOPROLOL SUCCINATE [Concomitant]
  8. KLOR-CON [Concomitant]
  9. ZOCOR [Concomitant]
  10. LISINOPRIL [Concomitant]
  11. ALPRAZOLAM [Concomitant]
  12. AMBIEN [Concomitant]

REACTIONS (11)
  - BLOOD GLUCOSE DECREASED [None]
  - DECREASED APPETITE [None]
  - ERUCTATION [None]
  - FEELING JITTERY [None]
  - HYPERHIDROSIS [None]
  - INSOMNIA [None]
  - IRRITABILITY [None]
  - NERVOUSNESS [None]
  - OESOPHAGEAL DISCOMFORT [None]
  - VISUAL ACUITY REDUCED [None]
  - WEIGHT DECREASED [None]
